FAERS Safety Report 19611746 (Version 3)
Quarter: 2021Q3

REPORT INFORMATION
  Report Type: Spontaneous
  Country: IT (occurrence: IT)
  Receive Date: 20210727
  Receipt Date: 20210826
  Transmission Date: 20211014
  Serious: Yes (Death, Other)
  Sender: FDA-Public Use
  Company Number: IT-AUROBINDO-AUR-APL-2021-031622

PATIENT
  Age: 13 Year
  Sex: Male

DRUGS (18)
  1. LEVETIRACETAM. [Suspect]
     Active Substance: LEVETIRACETAM
     Indication: CLONIC CONVULSION
     Dosage: UNK
     Route: 065
  2. ANAKINRA [Suspect]
     Active Substance: ANAKINRA
     Indication: ENCEPHALITIS AUTOIMMUNE
     Dosage: UNK, SECOND LINE TREATMENT
     Route: 065
  3. MIDAZOLAM. [Suspect]
     Active Substance: MIDAZOLAM
     Indication: CLONIC CONVULSION
     Dosage: UNK
     Route: 042
  4. MIDAZOLAM. [Suspect]
     Active Substance: MIDAZOLAM
     Indication: STATUS EPILEPTICUS
  5. PERAMPANEL [Suspect]
     Active Substance: PERAMPANEL
     Indication: CLONIC CONVULSION
     Dosage: UNK
     Route: 065
  6. RITUXIMAB. [Suspect]
     Active Substance: RITUXIMAB
     Indication: ENCEPHALITIS AUTOIMMUNE
     Dosage: UNK, SECOND LINE TREATMENT
     Route: 065
  7. KETAMINE [Concomitant]
     Active Substance: KETAMINE
     Indication: STATUS EPILEPTICUS
     Dosage: UNK
     Route: 042
  8. PHENOBARBITAL. [Suspect]
     Active Substance: PHENOBARBITAL
     Indication: CLONIC CONVULSION
     Dosage: UNK
     Route: 065
  9. SIROLIMUS. [Suspect]
     Active Substance: SIROLIMUS
     Indication: ENCEPHALITIS AUTOIMMUNE
     Dosage: UNK, SECOND LINE TREATMENT
     Route: 065
  10. VALPROATE [Suspect]
     Active Substance: VALPROIC ACID
     Indication: CLONIC CONVULSION
     Dosage: UNK
     Route: 065
  11. PHENYTOIN. [Suspect]
     Active Substance: PHENYTOIN
     Indication: CLONIC CONVULSION
     Dosage: UNK
     Route: 065
  12. BORTEZOMIB. [Suspect]
     Active Substance: BORTEZOMIB
     Indication: ENCEPHALITIS AUTOIMMUNE
     Dosage: UNK, SECOND LINE TREATMENT
     Route: 065
  13. CLOBAZAM. [Suspect]
     Active Substance: CLOBAZAM
     Indication: CLONIC CONVULSION
     Dosage: UNK
     Route: 065
  14. THIOPENTAL [Suspect]
     Active Substance: THIOPENTAL
     Indication: CLONIC CONVULSION
     Dosage: 2?5 MG/KG/HOUR
     Route: 065
  15. LIDOCAINE. [Concomitant]
     Active Substance: LIDOCAINE
     Indication: PRODUCT USED FOR UNKNOWN INDICATION
     Dosage: UNK
     Route: 065
  16. CARBAMAZEPINE. [Suspect]
     Active Substance: CARBAMAZEPINE
     Indication: CLONIC CONVULSION
     Dosage: UNK
     Route: 065
  17. TOPIRAMATE. [Suspect]
     Active Substance: TOPIRAMATE
     Indication: CLONIC CONVULSION
     Dosage: UNK
     Route: 065
  18. LACOSAMIDE. [Suspect]
     Active Substance: LACOSAMIDE
     Indication: CLONIC CONVULSION
     Dosage: UNK
     Route: 065

REACTIONS (4)
  - Septic shock [Fatal]
  - Drug ineffective [Unknown]
  - Necrotising colitis [Fatal]
  - Off label use [Unknown]
